FAERS Safety Report 8163327-6 (Version None)
Quarter: 2012Q1

REPORT INFORMATION
  Report Type: 
  Country: None (occurrence: None)
  Receive Date: 20120224
  Receipt Date: 20120223
  Transmission Date: 20120608
  Serious: Yes (Life-Threatening)
  Sender: FDA-Public Use
  Company Number: DE-BAYER-2012-018129

PATIENT
  Sex: Male

DRUGS (1)
  1. GADAVIST [Suspect]
     Indication: NUCLEAR MAGNETIC RESONANCE IMAGING
     Dosage: UNK
     Route: 042
     Dates: start: 20120223, end: 20120223

REACTIONS (4)
  - MUSCLE SPASMS [None]
  - CARDIOVASCULAR DISORDER [None]
  - PARAESTHESIA [None]
  - FEELING HOT [None]
